FAERS Safety Report 11116822 (Version 2)
Quarter: 2015Q2

REPORT INFORMATION
  Report Type: Spontaneous
  Country: JP (occurrence: JP)
  Receive Date: 20150515
  Receipt Date: 20150615
  Transmission Date: 20150821
  Serious: Yes (Other)
  Sender: FDA-Public Use
  Company Number: JP-PFIZER INC-2015160317

PATIENT
  Age: 87 Year
  Sex: Female

DRUGS (16)
  1. CINAL [Concomitant]
     Active Substance: ASCORBIC ACID\CALCIUM PANTOTHENATE
     Dosage: UNK
     Route: 048
  2. BENZALIN [Concomitant]
     Active Substance: NITRAZEPAM
     Dosage: UNK
     Route: 048
  3. XALATAN [Concomitant]
     Active Substance: LATANOPROST
     Dosage: UNK
     Route: 047
  4. LAC-B GRANULAR POWDER N [Concomitant]
     Dosage: UNK
     Route: 048
  5. MAGLAX [Concomitant]
     Active Substance: MAGNESIUM OXIDE
     Dosage: UNK
     Route: 048
  6. GASCON [Concomitant]
     Active Substance: DIMETHICONE
     Dosage: UNK
     Route: 048
  7. LIPITOR [Concomitant]
     Active Substance: ATORVASTATIN CALCIUM
     Dosage: UNK
     Route: 048
  8. LAXOBERON [Concomitant]
     Active Substance: SODIUM PICOSULFATE
     Dosage: UNK
     Route: 048
  9. CATALIN K [Concomitant]
     Dosage: UNK
     Route: 047
  10. CONIEL [Concomitant]
     Active Substance: BENIDIPINE HYDROCHLORIDE
     Dosage: UNK
     Route: 048
  11. BUFFERIN A81 [Concomitant]
     Dosage: UNK
     Route: 048
  12. EPADEL-S600 [Concomitant]
     Indication: PERIPHERAL COLDNESS
     Dosage: UNK
     Route: 048
     Dates: start: 20110131
  13. VECTAN [Concomitant]
     Dosage: UNK
     Route: 048
  14. TIMOPTOL XE [Concomitant]
     Active Substance: TIMOLOL MALEATE
     Dosage: UNK
     Route: 047
  15. ZITHROMAC SR [Suspect]
     Active Substance: AZITHROMYCIN DIHYDRATE
     Dosage: 2 G, UNK
     Route: 048
  16. SULPIRIDE [Concomitant]
     Active Substance: SULPIRIDE
     Dosage: UNK
     Route: 048

REACTIONS (1)
  - IIIrd nerve paralysis [Not Recovered/Not Resolved]

NARRATIVE: CASE EVENT DATE: 20150423
